FAERS Safety Report 15269891 (Version 1)
Quarter: 2018Q3

REPORT INFORMATION
  Report Type: Spontaneous
  Country: US (occurrence: US)
  Receive Date: 20180813
  Receipt Date: 20180813
  Transmission Date: 20181010
  Serious: No
  Sender: FDA-Public Use
  Company Number: US-CELLTRION INC.-2017US014485

PATIENT

DRUGS (4)
  1. INFLECTRA [Suspect]
     Active Substance: INFLIXIMAB-DYYB
     Dosage: 3 VIALS, 5 MG/KG, EVERY 8 WEEKS
     Route: 065
     Dates: start: 20171005, end: 20171005
  2. INFLECTRA [Suspect]
     Active Substance: INFLIXIMAB-DYYB
     Dosage: UNK MG/KG
     Route: 065
     Dates: start: 20180531, end: 20180531
  3. INFLECTRA [Suspect]
     Active Substance: INFLIXIMAB-DYYB
     Indication: PRODUCT USED FOR UNKNOWN INDICATION
     Dosage: 3 VIALS, 5 MG/KG, EVERY 8 WEEKS
     Route: 065
     Dates: start: 20170711, end: 20170711
  4. INFLECTRA [Suspect]
     Active Substance: INFLIXIMAB-DYYB
     Dosage: 3 VIALS, 5 MG/KG, EVERY 8 WEEKS
     Route: 065
     Dates: start: 20180404, end: 20180404

REACTIONS (3)
  - Drug prescribing error [Unknown]
  - Drug dose omission [Unknown]
  - Inappropriate schedule of drug administration [Unknown]
